FAERS Safety Report 5282298-3 (Version None)
Quarter: 2007Q1

REPORT INFORMATION
  Report Type: 
  Country: None (occurrence: None)
  Receive Date: 20070331
  Receipt Date: 20070320
  Transmission Date: 20070707
  Serious: Yes (Other)
  Sender: FDA-Public Use
  Company Number: US-PFIZER INC-2007023610

PATIENT
  Sex: Male

DRUGS (4)
  1. NEURONTIN [Suspect]
     Indication: BACK PAIN
  2. NEURONTIN [Suspect]
     Indication: PAIN IN EXTREMITY
  3. LORTAB [Concomitant]
  4. MORPHINE [Concomitant]

REACTIONS (5)
  - EUPHORIC MOOD [None]
  - IMPAIRED DRIVING ABILITY [None]
  - OCULAR HYPERAEMIA [None]
  - VISION BLURRED [None]
  - VISUAL DISTURBANCE [None]
